FAERS Safety Report 9031867 (Version 1)
Quarter: 2013Q1

REPORT INFORMATION
  Report Type: Spontaneous
  Country: ES (occurrence: ES)
  Receive Date: 20130124
  Receipt Date: 20130124
  Transmission Date: 20140127
  Serious: Yes (Hospitalization)
  Sender: FDA-Public Use
  Company Number: ES-BAYER-2013-008473

PATIENT
  Age: 86 Year
  Sex: Male

DRUGS (6)
  1. ADIRO 100 [Suspect]
     Indication: PROPHYLAXIS
     Dosage: 100 MG, QD
     Route: 048
     Dates: start: 2008, end: 20120723
  2. SINTROM [Interacting]
     Indication: ATRIAL FIBRILLATION
     Route: 048
     Dates: start: 20120503, end: 20120723
  3. ATORVASTATIN [Concomitant]
     Indication: DYSLIPIDAEMIA
     Dosage: 20 MG, QD
     Route: 048
     Dates: start: 20120531
  4. OMEPRAZOL [Concomitant]
     Indication: PROPHYLAXIS
     Dosage: 20 MG, QD
     Route: 048
     Dates: start: 20110531
  5. AMIODARONE [Concomitant]
     Indication: ATRIAL FIBRILLATION
     Dosage: 200 MG, QD
     Route: 048
     Dates: start: 20110531
  6. ENALAPRIL [Concomitant]
     Indication: HYPERTENSION
     Dosage: 2.5 MG, BID
     Route: 048
     Dates: start: 2008

REACTIONS (3)
  - Anaemia [Recovered/Resolved]
  - Syncope [Recovered/Resolved]
  - Hypocoagulable state [Recovered/Resolved]
